FAERS Safety Report 10277917 (Version 1)
Quarter: 2014Q3

REPORT INFORMATION
  Report Type: Report from Study
  Country: AR (occurrence: AR)
  Receive Date: 20140704
  Receipt Date: 20140704
  Transmission Date: 20150326
  Serious: Yes (Other)
  Sender: FDA-Public Use
  Company Number: AR-BRISTOL-MYERS SQUIBB COMPANY-21168893

PATIENT
  Age: 53 Year
  Sex: Female

DRUGS (3)
  1. ERBITUX [Suspect]
     Active Substance: CETUXIMAB
     Indication: COLON CANCER
     Dosage: UPTO 01JUL05?01JAN11-01JAN12:365 D
     Dates: start: 20050101
  2. AVASTIN [Suspect]
     Active Substance: BEVACIZUMAB
  3. VITAMIN K [Concomitant]
     Active Substance: PHYTONADIONE
     Indication: PROPHYLAXIS
     Route: 061

REACTIONS (2)
  - Metastases to lung [Unknown]
  - Thrombosis [Unknown]
